FAERS Safety Report 8085262-4 (Version None)
Quarter: 2012Q1

REPORT INFORMATION
  Report Type: 
  Country: None (occurrence: None)
  Receive Date: 20120128
  Receipt Date: 20110317
  Transmission Date: 20120608
  Serious: No
  Sender: FDA-Public Use
  Company Number: US-ABBOTT-11P-163-0713378-00

PATIENT
  Sex: Female

DRUGS (4)
  1. HUMIRA [Suspect]
     Indication: COLITIS ULCERATIVE
     Dates: start: 20081001
  2. LIALDA [Concomitant]
     Indication: PRODUCT USED FOR UNKNOWN INDICATION
  3. DEXALONE [Concomitant]
     Indication: GASTROOESOPHAGEAL REFLUX DISEASE
  4. MYCOPHENOLATE MOFETIL (CELLCEPT) [Concomitant]
     Indication: AUTOIMMUNE DISORDER

REACTIONS (6)
  - OROPHARYNGEAL PAIN [None]
  - PRODUCTIVE COUGH [None]
  - RESPIRATORY TRACT CONGESTION [None]
  - COUGH [None]
  - NASOPHARYNGITIS [None]
  - AUTOIMMUNE HEPATITIS [None]
